FAERS Safety Report 25648018 (Version 7)
Quarter: 2025Q4

REPORT INFORMATION
  Report Type: Report from Study
  Country: CA (occurrence: CA)
  Receive Date: 20250806
  Receipt Date: 20251224
  Transmission Date: 20260117
  Serious: Yes (Other)
  Sender: TAKEDA
  Company Number: CA-TAKEDA-2025TUS035780

PATIENT
  Age: 65 Year
  Sex: Female

DRUGS (7)
  1. VEDOLIZUMAB [Suspect]
     Active Substance: VEDOLIZUMAB
     Indication: Colitis ulcerative
     Dosage: 300 MILLIGRAM
  2. VEDOLIZUMAB [Suspect]
     Active Substance: VEDOLIZUMAB
     Dosage: 300 MILLIGRAM
  3. VEDOLIZUMAB [Suspect]
     Active Substance: VEDOLIZUMAB
     Dosage: 300 MILLIGRAM
  4. LANSOPRAZOLE [Concomitant]
     Active Substance: LANSOPRAZOLE
     Dosage: 30 MILLIGRAM
  5. VITAMIN D3 [Concomitant]
     Active Substance: CHOLECALCIFEROL
     Dosage: 1000 INTERNATIONAL UNIT
  6. PREGABALIN [Concomitant]
     Active Substance: PREGABALIN
     Dosage: 200 MILLIGRAM, BID
  7. TYLENOL ARTHRITIS PAIN [Concomitant]
     Active Substance: ACETAMINOPHEN
     Dosage: 325 MILLIGRAM

REACTIONS (10)
  - Breast cancer recurrent [Unknown]
  - Neuropathy peripheral [Unknown]
  - Urinary incontinence [Unknown]
  - Neurogenic bowel [Unknown]
  - Loss of bladder sensation [Unknown]
  - Hypoaesthesia [Unknown]
  - Burning sensation [Unknown]
  - Neoplasm [Unknown]
  - Procedural pain [Unknown]
  - Back pain [Unknown]

NARRATIVE: CASE EVENT DATE: 20250722
